FAERS Safety Report 13233180 (Version 1)
Quarter: 2017Q1

REPORT INFORMATION
  Report Type: Spontaneous
  Country: US (occurrence: US)
  Receive Date: 20170215
  Receipt Date: 20170215
  Transmission Date: 20170428
  Serious: No
  Sender: FDA-Public Use
  Company Number: PHEH2017US003934

PATIENT
  Age: 74 Year
  Sex: Female

DRUGS (1)
  1. VALSARTAN. [Suspect]
     Active Substance: VALSARTAN
     Indication: CARDIAC FAILURE
     Dosage: UNK
     Route: 048
     Dates: start: 20170103, end: 20170115

REACTIONS (2)
  - Nasal discomfort [Unknown]
  - Oral pain [Unknown]

NARRATIVE: CASE EVENT DATE: 20170203
